FAERS Safety Report 8031564 (Version 3)
Quarter: 2013Q2

REPORT INFORMATION
  Report Type: Spontaneous
  Country: US (occurrence: US)
  Receive Date: 20110712
  Receipt Date: 20130524
  Transmission Date: 20140414
  Serious: Yes (Death, Hospitalization)
  Sender: FDA-Public Use
  Company Number: US-B.I. PHARMACEUTICALS,INC./RIDGEFIELD-2011-BP-17401BP

PATIENT
  Age: 78 Year
  Sex: Male
  Weight: 96.62 kg

DRUGS (2)
  1. PRADAXA [Suspect]
     Indication: ATRIAL FIBRILLATION
     Dosage: 300 MG
     Route: 048
     Dates: start: 20110421, end: 20110620
  2. COUMADIN [Suspect]

REACTIONS (1)
  - Gastrointestinal haemorrhage [Fatal]
